FAERS Safety Report 16193490 (Version 1)
Quarter: 2019Q2

REPORT INFORMATION
  Report Type: Spontaneous
  Country: DE (occurrence: DE)
  Receive Date: 20190413
  Receipt Date: 20190413
  Transmission Date: 20190711
  Serious: Yes (Life-Threatening, Hospitalization, Disabling, Other)
  Sender: FDA-Public Use
  Company Number: DE-TEVA-2019-DE-1035161

PATIENT
  Age: 74 Year
  Sex: Female
  Weight: 65 kg

DRUGS (15)
  1. DUAKLIR GENUAIR 340 MIKROGRAMM/12 MIKROGRAMM [Concomitant]
     Dosage: 2 DOSAGE FORMS DAILY;
     Route: 055
  2. CISPLATIN. [Suspect]
     Active Substance: CISPLATIN
     Indication: CHEMOTHERAPY
     Route: 042
     Dates: start: 20180803
  3. PANTOPRAZOL [Concomitant]
     Active Substance: PANTOPRAZOLE SODIUM
     Dosage: 40 MILLIGRAM DAILY;
     Route: 048
  4. ONDANSETRON [Concomitant]
     Active Substance: ONDANSETRON
     Indication: NAUSEA
     Route: 048
  5. EMEND 80 MG HARTKAPSEL [Concomitant]
     Route: 048
     Dates: start: 20180803
  6. MYOCHOLINE-GLENWOOD TABLETTEN 25 MG [Concomitant]
     Dosage: 25 MILLIGRAM DAILY;
     Route: 048
  7. VINORELBINE [Suspect]
     Active Substance: VINORELBINE\VINORELBINE TARTRATE
     Indication: CHEMOTHERAPY
     Route: 042
     Dates: start: 20180803
  8. METOPROLOL. [Concomitant]
     Active Substance: METOPROLOL
     Dosage: 100 MILLIGRAM DAILY;
     Route: 048
  9. LISINOPRIL. [Concomitant]
     Active Substance: LISINOPRIL
     Dosage: 20 MILLIGRAM DAILY;
     Route: 048
  10. METOCLOPRAMID [Concomitant]
     Active Substance: METOCLOPRAMIDE
     Indication: NAUSEA
     Route: 048
  11. AMLODIPIN [Concomitant]
     Active Substance: AMLODIPINE BESYLATE
     Route: 048
  12. ZOPICLON [Concomitant]
     Active Substance: ZOPICLONE
     Route: 048
  13. ESTRIFAM 2 MG FILMTABLETTE [Concomitant]
     Route: 048
  14. KEVATRIL FILMTABLETTEN 2 MG [Concomitant]
     Route: 048
     Dates: start: 20180803
  15. JODID [Concomitant]
     Active Substance: IODINE
     Indication: HYPOTHYROIDISM
     Dosage: 200 MILLIGRAM DAILY;
     Route: 048

REACTIONS (4)
  - Peritonitis [Recovered/Resolved with Sequelae]
  - Acute abdomen [Recovered/Resolved with Sequelae]
  - Gastrointestinal necrosis [Recovered/Resolved with Sequelae]
  - Serositis [Not Recovered/Not Resolved]

NARRATIVE: CASE EVENT DATE: 2018
